FAERS Safety Report 6682015-6 (Version None)
Quarter: 2010Q2

REPORT INFORMATION
  Report Type: 
  Country: None (occurrence: None)
  Receive Date: 20100414
  Receipt Date: 20100414
  Transmission Date: 20101027
  Serious: Yes (Hospitalization, Other)
  Sender: FDA-Public Use
  Company Number: None

PATIENT
  Age: 25 Year
  Sex: Female
  Weight: 75.7507 kg

DRUGS (1)
  1. NUVARING [Suspect]
     Indication: CONTRACEPTION
     Dosage: AS DIRECTED 3-WEEK PERIOD USE VAG
     Route: 067

REACTIONS (4)
  - ANGINA PECTORIS [None]
  - DIZZINESS [None]
  - DYSPNOEA [None]
  - VOMITING [None]
